FAERS Safety Report 23475310 (Version 1)
Quarter: 2024Q1

REPORT INFORMATION
  Report Type: Report from Study
  Country: US (occurrence: US)
  Receive Date: 20240204
  Receipt Date: 20240204
  Transmission Date: 20240409
  Serious: No
  Sender: FDA-Public Use
  Company Number: US-EXELIXIS-CABO-22059098

PATIENT
  Sex: Male

DRUGS (5)
  1. CABOMETYX [Suspect]
     Active Substance: CABOZANTINIB S-MALATE
     Indication: Hepatocellular carcinoma
     Dosage: 60 MG, QD
     Route: 048
     Dates: start: 202211
  2. CABOMETYX [Suspect]
     Active Substance: CABOZANTINIB S-MALATE
     Indication: Neuroendocrine carcinoma
     Dosage: HALF DOSES
     Route: 048
  3. CABOMETYX [Suspect]
     Active Substance: CABOZANTINIB S-MALATE
     Dosage: 60 MG, QD
     Route: 048
     Dates: start: 20221229, end: 20230113
  4. CABOMETYX [Suspect]
     Active Substance: CABOZANTINIB S-MALATE
     Dosage: HALF OF TABLET, QD
     Route: 048
  5. CABOMETYX [Suspect]
     Active Substance: CABOZANTINIB S-MALATE
     Dosage: 40 MG, QD (TWO 20 MG TABLETS BY MOUTH DAILY)
     Route: 048

REACTIONS (17)
  - Adverse drug reaction [Unknown]
  - Drug intolerance [Unknown]
  - Malaise [Unknown]
  - Discomfort [Unknown]
  - Colitis [Unknown]
  - Acne [Unknown]
  - Lethargy [Unknown]
  - Gastrooesophageal reflux disease [Recovering/Resolving]
  - Hypertension [Unknown]
  - Dry skin [Unknown]
  - Dry mouth [Unknown]
  - Diarrhoea [Recovered/Resolved]
  - Constipation [Unknown]
  - Fatigue [Unknown]
  - Taste disorder [Unknown]
  - Weight decreased [Unknown]
  - Wrong technique in product usage process [Unknown]
